FAERS Safety Report 13269171 (Version 1)
Quarter: 2017Q1

REPORT INFORMATION
  Report Type: Report from Study
  Country: US (occurrence: US)
  Receive Date: 20170224
  Receipt Date: 20170224
  Transmission Date: 20170428
  Serious: Yes (Other)
  Sender: FDA-Public Use
  Company Number: US-AMGEN-USASL2017025869

PATIENT
  Age: 69 Year
  Sex: Female

DRUGS (1)
  1. ENBREL [Suspect]
     Active Substance: ETANERCEPT
     Indication: RHEUMATOID ARTHRITIS
     Dosage: 50 MG, QWK
     Route: 065

REACTIONS (7)
  - Gait disturbance [Unknown]
  - Disability [Unknown]
  - Wheelchair user [Unknown]
  - Pain [Unknown]
  - Dementia Alzheimer^s type [Unknown]
  - Malaise [Not Recovered/Not Resolved]
  - Terminal state [Unknown]
